FAERS Safety Report 7228946-X (Version None)
Quarter: 2011Q1

REPORT INFORMATION
  Report Type: 
  Country: None (occurrence: None)
  Receive Date: 20110117
  Receipt Date: 20110113
  Transmission Date: 20110831
  Serious: Yes (Life-Threatening, Hospitalization, Other)
  Sender: FDA-Public Use
  Company Number: DE-SANOFI-AVENTIS-2010SA073711

PATIENT
  Age: 78 Year
  Sex: Female
  Weight: 95 kg

DRUGS (9)
  1. CLEXANE [Concomitant]
     Route: 058
     Dates: start: 20100727, end: 20101029
  2. MULTAQ [Suspect]
     Dosage: 2X1 FILM-COATED TABLET AT 400 MG DAILY PER OS
     Route: 048
     Dates: start: 20100727, end: 20101011
  3. METOPROLOL SUCCINATE [Concomitant]
     Route: 048
     Dates: start: 20100727
  4. IBUFLAM [Suspect]
     Route: 048
     Dates: start: 20100705, end: 20101011
  5. TORSEMIDE [Suspect]
     Route: 048
     Dates: start: 20100727, end: 20101011
  6. ACETYLSALICYLIC ACID [Concomitant]
     Route: 048
     Dates: start: 20100727
  7. RAMILICH COMP [Suspect]
     Dosage: 1 DF=5/25 MG
     Route: 048
     Dates: start: 20100727, end: 20101011
  8. ACETYLSALICYLIC ACID/CAFFEINE/PARACETAMOL [Concomitant]
     Dosage: DOSAGE: 1X1 TABLET NEARLY 1X MONTHLY UP TO EVERY SECOND DAY
     Route: 048
     Dates: start: 20080701
  9. RAMIPRIL [Suspect]
     Route: 048
     Dates: start: 20100727, end: 20101001

REACTIONS (4)
  - BLOOD UREA INCREASED [None]
  - RENAL FAILURE ACUTE [None]
  - DEHYDRATION [None]
  - BLOOD CREATININE INCREASED [None]
